FAERS Safety Report 7173143-X (Version None)
Quarter: 2010Q4

REPORT INFORMATION
  Report Type: 
  Country: None (occurrence: None)
  Receive Date: 20101219
  Receipt Date: 20100222
  Transmission Date: 20110411
  Serious: Yes (Other)
  Sender: FDA-Public Use
  Company Number: US-AMGEN-QUU394295

PATIENT

DRUGS (5)
  1. ENBREL [Suspect]
     Indication: RHEUMATOID ARTHRITIS
     Dosage: 25 MG, QWK
     Dates: start: 20050101
  2. PREDNISONE [Concomitant]
     Dosage: UNK UNK, UNK
  3. MELOXICAM [Concomitant]
     Dosage: UNK UNK, UNK
  4. ROSUVASTATIN CALCIUM [Concomitant]
     Dosage: UNK UNK, UNK
  5. IBANDRONATE SODIUM [Concomitant]
     Dosage: UNK UNK, UNK

REACTIONS (1)
  - MALIGNANT MELANOMA [None]
